FAERS Safety Report 14219447 (Version 1)
Quarter: 2017Q4

REPORT INFORMATION
  Report Type: Report from Study
  Country: US (occurrence: US)
  Receive Date: 20171123
  Receipt Date: 20171123
  Transmission Date: 20180321
  Serious: Yes (Hospitalization, Other)
  Sender: FDA-Public Use
  Company Number: US-GILEAD-2017-0306221

PATIENT
  Age: 76 Year
  Sex: Female

DRUGS (31)
  1. XARELTO [Concomitant]
     Active Substance: RIVAROXABAN
  2. OMEPRAZOLE. [Concomitant]
     Active Substance: OMEPRAZOLE
  3. MULTI VIT [Concomitant]
  4. VITAMIN K [Concomitant]
     Active Substance: PHYTONADIONE
  5. LIOTHYRONINE [Concomitant]
     Active Substance: LIOTHYRONINE
  6. SPIRONOLACTON [Concomitant]
     Active Substance: SPIRONOLACTONE
  7. CALCIUM [Concomitant]
     Active Substance: CALCIUM
  8. PROBIOTIC                          /06395501/ [Concomitant]
     Active Substance: BIFIDOBACTERIUM ANIMALIS LACTIS
  9. ALBUTEROL                          /00139501/ [Concomitant]
     Active Substance: ALBUTEROL
  10. FUROSEMIDE. [Concomitant]
     Active Substance: FUROSEMIDE
  11. LYSINE [Concomitant]
     Active Substance: LYSINE
  12. VITAMIN D [Concomitant]
     Active Substance: CHOLECALCIFEROL
  13. BIOTIN [Concomitant]
     Active Substance: BIOTIN
  14. METOLAZONE. [Concomitant]
     Active Substance: METOLAZONE
  15. MONTELUKAST [Concomitant]
     Active Substance: MONTELUKAST SODIUM
  16. MAGNESIUM [Concomitant]
     Active Substance: MAGNESIUM
  17. COENZYME Q10 [Concomitant]
     Active Substance: UBIDECARENONE
  18. LYRICA [Concomitant]
     Active Substance: PREGABALIN
  19. FLONASE                            /00908302/ [Concomitant]
     Active Substance: MOMETASONE FUROATE
  20. POTASSIUM [Concomitant]
     Active Substance: POTASSIUM
  21. AMBRISENTAN [Suspect]
     Active Substance: AMBRISENTAN
     Indication: PULMONARY HYPERTENSION
     Dosage: 10 MG, QD
     Route: 065
     Dates: start: 20140917
  22. GABAPENTIN. [Concomitant]
     Active Substance: GABAPENTIN
  23. LEVOTHYROXINE. [Concomitant]
     Active Substance: LEVOTHYROXINE
  24. ADEMPAS [Concomitant]
     Active Substance: RIOCIGUAT
  25. WARFARIN [Concomitant]
     Active Substance: WARFARIN
  26. AUGMENTIN [Concomitant]
     Active Substance: AMOXICILLIN\CLAVULANATE POTASSIUM
  27. VALTREX [Concomitant]
     Active Substance: VALACYCLOVIR HYDROCHLORIDE
  28. QVAR [Concomitant]
     Active Substance: BECLOMETHASONE DIPROPIONATE
  29. OMEGA 3                            /01333901/ [Concomitant]
     Active Substance: FISH OIL\TOCOPHEROL
  30. NYSTATIN. [Concomitant]
     Active Substance: NYSTATIN
  31. SELENIUM [Concomitant]
     Active Substance: SELENIUM

REACTIONS (6)
  - Oropharyngeal pain [Not Recovered/Not Resolved]
  - Candida infection [Not Recovered/Not Resolved]
  - Pain in jaw [Not Recovered/Not Resolved]
  - Chemotherapy [Not Recovered/Not Resolved]
  - Musculoskeletal pain [Not Recovered/Not Resolved]
  - Headache [Not Recovered/Not Resolved]

NARRATIVE: CASE EVENT DATE: 201711
